FAERS Safety Report 5205854-7 (Version None)
Quarter: 2007Q1

REPORT INFORMATION
  Report Type: 
  Country: None (occurrence: None)
  Receive Date: 20070105
  Receipt Date: 20070105
  Transmission Date: 20070707
  Serious: Yes (Hospitalization)
  Sender: FDA-Public Use
  Company Number: None

PATIENT
  Sex: Male
  Weight: 136.0791 kg

DRUGS (12)
  1. CEPHALEXIN [Suspect]
     Indication: CELLULITIS
     Dosage: PO
     Route: 048
  2. LISINOPRIL [Suspect]
     Indication: HYPERTENSION
     Dosage: 40 MG DAILY PO
     Route: 048
     Dates: start: 20010101, end: 20060101
  3. MECLIZINE [Concomitant]
  4. GEMFIBROZIL [Concomitant]
  5. BETAMETHASONE DIPROPIONATE [Concomitant]
  6. TRIAMCINOLONE ACETONIDE [Concomitant]
  7. CALCIPOTRIENE [Concomitant]
  8. GLIPIZIDE [Concomitant]
  9. METFORMIN [Concomitant]
  10. HYDROCHLOROTHIAZIDE [Concomitant]
  11. LISINOPRIL [Concomitant]
  12. VERAPAMIL [Concomitant]

REACTIONS (3)
  - ANGIOEDEMA [None]
  - DRUG HYPERSENSITIVITY [None]
  - NO THERAPEUTIC RESPONSE [None]
